FAERS Safety Report 6458608-8 (Version None)
Quarter: 2009Q4

REPORT INFORMATION
  Report Type: 
  Country: None (occurrence: None)
  Receive Date: 20091126
  Receipt Date: 20091119
  Transmission Date: 20100525
  Serious: Yes (Other)
  Sender: FDA-Public Use
  Company Number: US-BRISTOL-MYERS SQUIBB COMPANY-14866826

PATIENT
  Age: 52 Year
  Sex: Female
  Weight: 80 kg

DRUGS (2)
  1. CYTOXAN [Suspect]
     Indication: BREAST CANCER
     Route: 042
  2. TAXOTERE [Suspect]
     Indication: BREAST CANCER
     Dosage: PARENTERAL  CONC FOR SOLN FOR INF IV - 14SEP09-14SEP09      13JUL09-13JUL09
     Route: 042
     Dates: start: 20090713, end: 20090914

REACTIONS (1)
  - CAPILLARY LEAK SYNDROME [None]
